FAERS Safety Report 21304563 (Version 1)
Quarter: 2022Q3

REPORT INFORMATION
  Report Type: Spontaneous
  Country: US (occurrence: None)
  Receive Date: 20220907
  Receipt Date: 20220907
  Transmission Date: 20221027
  Serious: No
  Sender: FDA-Public Use
  Company Number: US-ARIS GLOBAL-202108-1483

PATIENT
  Sex: Female

DRUGS (16)
  1. OXERVATE [Suspect]
     Active Substance: CENEGERMIN-BKBJ
     Indication: Hypoaesthesia eye
     Route: 047
     Dates: start: 20210809
  2. OXERVATE [Suspect]
     Active Substance: CENEGERMIN-BKBJ
     Indication: Ulcerative keratitis
  3. LORAZEPAM [Concomitant]
     Active Substance: LORAZEPAM
  4. PRED FORTE [Concomitant]
     Active Substance: PREDNISOLONE ACETATE
  5. ALPHAGAN P [Concomitant]
     Active Substance: BRIMONIDINE TARTRATE
  6. TIMOLOL MALEATE [Concomitant]
     Active Substance: TIMOLOL MALEATE
  7. TRAZODONE HCL [Concomitant]
     Active Substance: TRAZODONE HYDROCHLORIDE
  8. LEXAPRO [Concomitant]
     Active Substance: ESCITALOPRAM OXALATE
  9. ACETAMINOPHEN\HYDROCODONE [Concomitant]
     Active Substance: ACETAMINOPHEN\HYDROCODONE
  10. HYDROCHLOROTHIAZIDE [Concomitant]
     Active Substance: HYDROCHLOROTHIAZIDE
  11. TYLENOL [Concomitant]
     Active Substance: ACETAMINOPHEN
  12. DOXYCYCLINE HYCLATE [Concomitant]
     Active Substance: DOXYCYCLINE HYCLATE
  13. LEVOTHYROXINE [Concomitant]
     Active Substance: LEVOTHYROXINE
  14. LOSARTAN POTASSIUM [Concomitant]
     Active Substance: LOSARTAN POTASSIUM
  15. GABAPENTIN [Concomitant]
     Active Substance: GABAPENTIN
  16. NEXIUM [Concomitant]
     Active Substance: ESOMEPRAZOLE MAGNESIUM

REACTIONS (4)
  - Eye pain [Unknown]
  - Ocular hyperaemia [Unknown]
  - Drug hypersensitivity [Unknown]
  - Therapy interrupted [Unknown]
